FAERS Safety Report 13537357 (Version 1)
Quarter: 2017Q2

REPORT INFORMATION
  Report Type: Spontaneous
  Country: ES (occurrence: ES)
  Receive Date: 20170511
  Receipt Date: 20170511
  Transmission Date: 20170830
  Serious: Yes (Other)
  Sender: FDA-Public Use
  Company Number: ES-ABBVIE-17P-144-1972682-00

PATIENT

DRUGS (2)
  1. VALPROATE SODIUM. [Suspect]
     Active Substance: VALPROATE SODIUM
     Indication: INFANTILE SPASMS
     Route: 065
  2. VALPROATE SODIUM. [Suspect]
     Active Substance: VALPROATE SODIUM
     Indication: INFANTILE SPASMS

REACTIONS (1)
  - Autism spectrum disorder [Unknown]
